FAERS Safety Report 10098855 (Version 1)
Quarter: 2014Q2

REPORT INFORMATION
  Report Type: Report from Study
  Country: DE (occurrence: DE)
  Receive Date: 20140423
  Receipt Date: 20140423
  Transmission Date: 20141212
  Serious: Yes (Hospitalization)
  Sender: FDA-Public Use
  Company Number: DE-ASTELLAS-2014US003968

PATIENT
  Sex: Female

DRUGS (7)
  1. ERLOTINIB [Suspect]
     Indication: NON-SMALL CELL LUNG CANCER
     Route: 048
     Dates: start: 20120827, end: 201209
  2. VITAMIN D3 [Concomitant]
     Indication: OSTEOPOROSIS
     Dosage: UNK UNK, ONCE DAILY
     Route: 048
     Dates: start: 201208
  3. ASS [Concomitant]
     Indication: PROPHYLAXIS
     Route: 048
  4. L-THYROXIN [Concomitant]
     Indication: AUTOIMMUNE THYROIDITIS
     Route: 048
  5. IBUHEXAL                           /00109201/ [Concomitant]
     Indication: PROPHYLAXIS
     Route: 048
  6. KEPPRA [Concomitant]
     Indication: METASTASES TO CENTRAL NERVOUS SYSTEM
     Route: 048
  7. CALCIUM [Concomitant]
     Indication: PRODUCT USED FOR UNKNOWN INDICATION
     Dosage: UNK UNK, UNKNOWN FREQ.
     Route: 065

REACTIONS (3)
  - Pancytopenia [Recovered/Resolved]
  - Dehydration [Recovered/Resolved]
  - Infection [Recovered/Resolved]
